FAERS Safety Report 11112108 (Version 1)
Quarter: 2015Q2

REPORT INFORMATION
  Report Type: Spontaneous
  Country: US (occurrence: None)
  Receive Date: 20150513
  Receipt Date: 20150513
  Transmission Date: 20150821
  Serious: Yes (Life-Threatening, Hospitalization)
  Sender: FDA-Public Use
  Company Number: None

PATIENT
  Age: 78 Year
  Sex: Male
  Weight: 60 kg

DRUGS (1)
  1. MIRCERA [Suspect]
     Active Substance: METHOXY POLYETHYLENE GLYCOL-EPOETIN BETA
     Indication: ANAEMIA
     Dosage: 040
     Dates: start: 20150508

REACTIONS (4)
  - Blood pressure decreased [None]
  - Dizziness [None]
  - Snoring [None]
  - Unresponsive to stimuli [None]

NARRATIVE: CASE EVENT DATE: 20150508
